FAERS Safety Report 22518393 (Version 2)
Quarter: 2023Q2

REPORT INFORMATION
  Report Type: Spontaneous
  Country: CN (occurrence: CN)
  Receive Date: 20230605
  Receipt Date: 20230614
  Transmission Date: 20230722
  Serious: Yes (Other)
  Sender: FDA-Public Use
  Company Number: CN-BEH-2023159411

PATIENT
  Age: 37 Year
  Sex: Female

DRUGS (8)
  1. ALBUMIN HUMAN [Suspect]
     Active Substance: ALBUMIN HUMAN
     Indication: Hypoproteinaemia
     Dosage: 10 GRAM, QD
     Route: 042
     Dates: start: 2019
  2. ALBUMIN HUMAN [Suspect]
     Active Substance: ALBUMIN HUMAN
     Dosage: 20 GRAM, QD
     Route: 042
     Dates: start: 2019
  3. HEPARIN CALCIUM [Suspect]
     Active Substance: HEPARIN CALCIUM
     Dosage: 5000 INTERNATIONAL UNIT, QD
     Route: 058
  4. HEPARIN CALCIUM [Suspect]
     Active Substance: HEPARIN CALCIUM
     Dosage: 5000 INTERNATIONAL UNIT, BID
     Route: 058
  5. CEFUROXIME [Suspect]
     Active Substance: CEFUROXIME
     Indication: Prophylaxis
     Dosage: 1.5 GRAM, BID
     Route: 042
  6. CEFOPERAZONE SODIUM\SULBACTAM SODIUM [Suspect]
     Active Substance: CEFOPERAZONE SODIUM\SULBACTAM SODIUM
     Dosage: 1.5 GRAM, BID
     Route: 042
  7. HYDROXYETHYL STARCH IN SODIUM CHLORIDE [Suspect]
     Active Substance: HYDROXYETHYL STARCH 130/0.4\SODIUM CHLORIDE
     Dosage: 130/.04
     Route: 042
  8. OXYGEN [Suspect]
     Active Substance: OXYGEN
     Dosage: UNK
     Route: 055

REACTIONS (2)
  - Foetal death [Not Recovered/Not Resolved]
  - Maternal exposure during pregnancy [Not Recovered/Not Resolved]
